FAERS Safety Report 20064550 (Version 1)
Quarter: 2021Q4

REPORT INFORMATION
  Report Type: Spontaneous
  Country: US (occurrence: US)
  Receive Date: 20211112
  Receipt Date: 20211112
  Transmission Date: 20220303
  Serious: Yes (Other)
  Sender: FDA-Public Use
  Company Number: US-UPSHER-SMITH LABORATORIES, LLC-2021USL00805

PATIENT
  Sex: Female

DRUGS (12)
  1. NYSTATIN [Suspect]
     Active Substance: NYSTATIN
     Dosage: UNK
     Dates: start: 1995, end: 2016
  2. COSMETICS [Suspect]
     Active Substance: COSMETICS
     Dosage: UNK
     Dates: start: 1961, end: 1967
  3. COSMETICS [Suspect]
     Active Substance: COSMETICS
     Dosage: UNK
     Dates: start: 1966, end: 1979
  4. COSMETICS [Suspect]
     Active Substance: COSMETICS
     Dosage: UNK
     Dates: start: 1968, end: 1988
  5. COSMETICS [Suspect]
     Active Substance: COSMETICS
     Dosage: UNK
     Dates: start: 1968, end: 1988
  6. JOHNSONS BABY POWDER (TALC) [Suspect]
     Active Substance: TALC
     Dosage: UNK
     Dates: start: 1969, end: 1974
  7. JOHNSONS BABY POWDER (TALC) [Suspect]
     Active Substance: TALC
     Dosage: UNK
     Dates: start: 1995, end: 2010
  8. TALC [Suspect]
     Active Substance: TALC
     Dosage: UNK
     Dates: start: 1969, end: 1974
  9. COSMETICS [Suspect]
     Active Substance: COSMETICS
     Dosage: UNK
     Dates: start: 1970, end: 1990
  10. TALC [Suspect]
     Active Substance: TALC
     Dosage: UNK
     Dates: start: 1975, end: 1986
  11. CALDESENE MEDICATED PROTECTING [Suspect]
     Active Substance: STARCH, PREGELATINIZED CORN\ZINC OXIDE
     Dosage: UNK
     Dates: start: 1985, end: 1987
  12. COSMETICS [Suspect]
     Active Substance: COSMETICS
     Dosage: UNK
     Dates: start: 1995, end: 1997

REACTIONS (5)
  - Biphasic mesothelioma [Not Recovered/Not Resolved]
  - Benign mesothelioma [Not Recovered/Not Resolved]
  - Exposure to chemical pollution [Recovered/Resolved]
  - Anxiety [Not Recovered/Not Resolved]
  - Unevaluable event [Not Recovered/Not Resolved]

NARRATIVE: CASE EVENT DATE: 19610101
